FAERS Safety Report 19517583 (Version 5)
Quarter: 2021Q4

REPORT INFORMATION
  Report Type: Report from Study
  Country: US (occurrence: None)
  Receive Date: 20210712
  Receipt Date: 20211229
  Transmission Date: 20220303
  Serious: Yes (Other)
  Sender: FDA-Public Use
  Company Number: US-MERCK HEALTHCARE KGAA-9249998

PATIENT
  Age: 74 Year
  Sex: Female

DRUGS (2)
  1. REBIF [Suspect]
     Active Substance: INTERFERON BETA-1A
     Indication: Multiple sclerosis
     Route: 058
     Dates: start: 202102
  2. TRAZODONE [Suspect]
     Active Substance: TRAZODONE HYDROCHLORIDE
     Indication: Product used for unknown indication
     Dates: start: 2021, end: 2021

REACTIONS (21)
  - Haemorrhagic diathesis [Unknown]
  - Gastritis [Unknown]
  - Gastric disorder [Unknown]
  - Oesophageal disorder [Unknown]
  - Angiopathy [Unknown]
  - Injection site discolouration [Unknown]
  - Fatigue [Unknown]
  - Depression [Unknown]
  - Heart rate decreased [Unknown]
  - Dyspnoea [Unknown]
  - Arthritis [Unknown]
  - Multiple sclerosis relapse [Unknown]
  - Muscle spasticity [Unknown]
  - Urinary retention [Unknown]
  - Pollakiuria [Unknown]
  - Arthropathy [Unknown]
  - Asthenia [Not Recovered/Not Resolved]
  - Muscular weakness [Not Recovered/Not Resolved]
  - Hypokinesia [Recovering/Resolving]
  - Myalgia [Recovering/Resolving]
  - Lack of injection site rotation [Unknown]

NARRATIVE: CASE EVENT DATE: 20210101
